FAERS Safety Report 8648177 (Version 2)
Quarter: 2012Q4

REPORT INFORMATION
  Report Type: 
  Country: JP (occurrence: JP)
  Receive Date: 20120703
  Receipt Date: 20120919
  Transmission Date: 20130627
  Serious: Yes (Hospitalization, Other)
  Sender: FDA-Public Use
  Company Number: JP-NAPPMUNDI-MAG-2012-0002210

PATIENT
  Age: 37 Year
  Sex: Female

DRUGS (3)
  1. BUPRENORPHINE TRANSDERMAL SYSTEM [Suspect]
     Indication: PIRIFORMIS SYNDROME
     Dosage: 10 mcg, q1h
     Route: 062
     Dates: start: 20120501, end: 20120611
  2. BUPRENORPHINE TRANSDERMAL SYSTEM [Suspect]
     Dosage: UNK
     Route: 062
     Dates: end: 20120430
  3. INTEBAN [Concomitant]
     Route: 048

REACTIONS (9)
  - Choking sensation [Recovered/Resolved]
  - Loss of consciousness [Recovered/Resolved]
  - Nasopharyngitis [Unknown]
  - Chills [Unknown]
  - Contusion [Recovered/Resolved]
  - Hallucination [Unknown]
  - Application site dermatitis [Unknown]
  - Drug ineffective [Unknown]
  - Feeling abnormal [Unknown]
